FAERS Safety Report 5280335-3 (Version None)
Quarter: 2007Q1

REPORT INFORMATION
  Report Type: 
  Country: None (occurrence: None)
  Receive Date: 20061229
  Receipt Date: 20061011
  Transmission Date: 20070707
  Serious: Yes (Other)
  Sender: FDA-Public Use
  Company Number: 2006UW19769

PATIENT
  Age: 54 Year
  Sex: Female

DRUGS (9)
  1. CRESTOR [Suspect]
     Dosage: 10 MG PO
     Route: 048
  2. CELEBREX [Concomitant]
  3. SINGULAIR [Concomitant]
  4. ACIPHEX [Concomitant]
  5. ASPIRIN [Concomitant]
  6. ENALAPRIL MALEATE [Concomitant]
  7. ATROVENT [Concomitant]
  8. NASONEX [Concomitant]
  9. ZOLOFT [Concomitant]

REACTIONS (1)
  - TACHYPHYLAXIS [None]
